FAERS Safety Report 26142526 (Version 1)
Quarter: 2025Q4

REPORT INFORMATION
  Report Type: Spontaneous
  Country: EU (occurrence: EU)
  Receive Date: 20251210
  Receipt Date: 20251210
  Transmission Date: 20260118
  Serious: Yes (Other)
  Sender: JOHNSON AND JOHNSON
  Company Number: EU-JNJFOC-20251207401

PATIENT
  Age: 76 Year
  Sex: Male

DRUGS (7)
  1. DARZALEX [Suspect]
     Active Substance: DARATUMUMAB
     Indication: Plasma cell myeloma
     Dosage: 2ND LINE
     Route: 058
  2. REVLIMID [Suspect]
     Active Substance: LENALIDOMIDE
     Indication: Plasma cell myeloma
     Dosage: 2ND LINE
     Route: 048
  3. REVLIMID [Suspect]
     Active Substance: LENALIDOMIDE
     Dosage: FROM 6TH CYCLE
     Route: 048
  4. REVLIMID [Suspect]
     Active Substance: LENALIDOMIDE
     Dosage: FROM 9TH CYCLE
     Route: 048
  5. REVLIMID [Suspect]
     Active Substance: LENALIDOMIDE
     Dosage: FROM CYCLE 12 TO 5 MG AND BEYOND
     Route: 048
  6. DEXAMETHASONE [Suspect]
     Active Substance: DEXAMETHASONE
     Indication: Plasma cell myeloma
     Dosage: 2ND LINE
     Route: 048
  7. DENOSUMAB [Concomitant]
     Active Substance: DENOSUMAB
     Indication: Bone disorder
     Route: 058

REACTIONS (1)
  - Myelodysplastic syndrome [Unknown]
